FAERS Safety Report 7937456-3 (Version None)
Quarter: 2011Q4

REPORT INFORMATION
  Report Type: 
  Country: None (occurrence: None)
  Receive Date: 20111123
  Receipt Date: 20111117
  Transmission Date: 20120403
  Serious: Yes (Other)
  Sender: FDA-Public Use
  Company Number: GXKR2011DE003352

PATIENT
  Age: 69 Year
  Sex: Female

DRUGS (1)
  1. LEVOFLOXACIN [Suspect]
     Dosage: 500 MG, UNK
     Route: 048

REACTIONS (2)
  - DIPLOPIA [None]
  - CONDITION AGGRAVATED [None]
